FAERS Safety Report 19631279 (Version 1)
Quarter: 2021Q3

REPORT INFORMATION
  Report Type: Report from Study
  Country: None (occurrence: DE)
  Receive Date: 20210728
  Receipt Date: 20210728
  Transmission Date: 20211014
  Serious: Yes (Hospitalization)
  Sender: FDA-Public Use
  Company Number: DE-ABBVIE-21P-062-4000896-00

PATIENT
  Age: 18 Year
  Sex: Male
  Weight: 62.2 kg

DRUGS (2)
  1. IBRUTINIB [Suspect]
     Active Substance: IBRUTINIB
     Indication: CHRONIC GRAFT VERSUS HOST DISEASE
     Dosage: MOST RECENT DOSE  WAS ON 03 JUN 2021
     Route: 048
     Dates: start: 20201030
  2. PREDNISOLONE. [Suspect]
     Active Substance: PREDNISOLONE
     Indication: CHRONIC GRAFT VERSUS HOST DISEASE
     Dosage: MOST RECENT DOSE WAS ON 03 JUN 2021
     Route: 048
     Dates: start: 20200917

REACTIONS (1)
  - Klebsiella infection [Recovered/Resolved]

NARRATIVE: CASE EVENT DATE: 20210604
